FAERS Safety Report 6190029-8 (Version None)
Quarter: 2009Q2

REPORT INFORMATION
  Report Type: 
  Country: None (occurrence: None)
  Receive Date: 20090514
  Receipt Date: 20090505
  Transmission Date: 20091009
  Serious: Yes (Other)
  Sender: FDA-Public Use
  Company Number: US-AVENTIS-200817582US

PATIENT
  Sex: Male
  Weight: 95.25 kg

DRUGS (1)
  1. KETEK [Suspect]
     Dates: start: 20041015

REACTIONS (8)
  - ABDOMINAL PAIN UPPER [None]
  - ARTHRALGIA [None]
  - BLOOD BILIRUBIN INCREASED [None]
  - FATIGUE [None]
  - HEPATIC ENZYME INCREASED [None]
  - HEPATITIS [None]
  - MYALGIA [None]
  - PYREXIA [None]
